FAERS Safety Report 7599338-9 (Version None)
Quarter: 2011Q3

REPORT INFORMATION
  Report Type: 
  Country: None (occurrence: None)
  Receive Date: 20110711
  Receipt Date: 20091214
  Transmission Date: 20111222
  Serious: Yes (Disabling, Other)
  Sender: FDA-Public Use
  Company Number: US-BAYER-200942762NA

PATIENT
  Age: 55 Year
  Sex: Female
  Weight: 71 kg

DRUGS (18)
  1. MAGNEVIST [Suspect]
     Indication: NUCLEAR MAGNETIC RESONANCE IMAGING
     Dates: start: 20070225, end: 20070225
  2. GADOLINIUM IN UNSPECIFIED DRUG [Suspect]
     Indication: NUCLEAR MAGNETIC RESONANCE IMAGING BRAIN
     Dosage: UNK
     Dates: start: 20070327, end: 20070327
  3. NORVASC [Concomitant]
  4. OMNISCAN [Suspect]
     Indication: LIMB DISCOMFORT
     Dosage: UNK
     Dates: start: 20070114, end: 20070114
  5. GADOLINIUM IN UNSPECIFIED DRUG [Suspect]
     Dosage: UNK
     Dates: start: 20080331, end: 20080331
  6. PLAVIX [Concomitant]
  7. GADOLINIUM IN UNSPECIFIED DRUG [Suspect]
     Indication: NUCLEAR MAGNETIC RESONANCE IMAGING
     Dosage: UNK
     Dates: start: 20070328, end: 20070328
  8. RENAGEL [Concomitant]
  9. ARANESP [Concomitant]
  10. PREDNISONE [Concomitant]
  11. ZEMPLAR [Concomitant]
  12. MAGNEVIST [Suspect]
     Indication: CONVULSION
  13. LIPITOR [Concomitant]
  14. PROTONIX [Concomitant]
  15. MAGNEVIST [Suspect]
     Dates: start: 20070327, end: 20070327
  16. OMNISCAN [Suspect]
     Indication: NUCLEAR MAGNETIC RESONANCE IMAGING
     Dosage: 60 ML, ONCE
     Dates: start: 20070323, end: 20070323
  17. OMNISCAN [Suspect]
     Dosage: UNK
     Dates: start: 20070117, end: 20070117
  18. PROCRIT [Concomitant]

REACTIONS (6)
  - NEPHROGENIC SYSTEMIC FIBROSIS [None]
  - SKIN TIGHTNESS [None]
  - JOINT STIFFNESS [None]
  - PAIN [None]
  - PHYSICAL DISABILITY [None]
  - EXTREMITY CONTRACTURE [None]
